FAERS Safety Report 23207322 (Version 1)
Quarter: 2023Q4

REPORT INFORMATION
  Report Type: Spontaneous
  Country: US (occurrence: US)
  Receive Date: 20231120
  Receipt Date: 20231120
  Transmission Date: 20240110
  Serious: Yes (Life-Threatening, Other)
  Sender: FDA-Public Use
  Company Number: US-BRACCO-2022US05334

PATIENT
  Age: 29 Year
  Sex: Male

DRUGS (13)
  1. LUMASON [Suspect]
     Active Substance: SULFUR HEXAFLUORIDE
     Indication: Echocardiogram
     Dosage: 1 ML, SINGLE
     Route: 042
     Dates: start: 20221206, end: 20221206
  2. LUMASON [Suspect]
     Active Substance: SULFUR HEXAFLUORIDE
     Indication: Echocardiogram
     Dosage: 1 ML, SINGLE
     Route: 042
     Dates: start: 20221206, end: 20221206
  3. LUMASON [Suspect]
     Active Substance: SULFUR HEXAFLUORIDE
     Indication: Echocardiogram
     Dosage: 1 ML, SINGLE
     Route: 042
     Dates: start: 20221206, end: 20221206
  4. TYLENOL [Concomitant]
     Active Substance: ACETAMINOPHEN
  5. BUMEX [Concomitant]
     Active Substance: BUMETANIDE
  6. PEPCID [Concomitant]
     Active Substance: FAMOTIDINE
  7. HEPARIN [Concomitant]
     Active Substance: HEPARIN SODIUM
  8. MAGNESIUM [Concomitant]
     Active Substance: MAGNESIUM
  9. MELATONIN [Concomitant]
     Active Substance: MELATONIN
  10. MILRINONE [Concomitant]
     Active Substance: MILRINONE
     Indication: Cardiac failure
  11. ZOFRAN [Concomitant]
     Active Substance: ONDANSETRON HYDROCHLORIDE
  12. ZOLOFT [Concomitant]
     Active Substance: SERTRALINE HYDROCHLORIDE
  13. DULCOLAX (BISACODYL) [Concomitant]
     Active Substance: BISACODYL

REACTIONS (1)
  - Anaphylactic reaction [Recovered/Resolved]

NARRATIVE: CASE EVENT DATE: 20221206
